FAERS Safety Report 4499996-1 (Version None)
Quarter: 2004Q4

REPORT INFORMATION
  Report Type: 
  Country: None (occurrence: None)
  Receive Date: 20041112
  Receipt Date: 20041029
  Transmission Date: 20050328
  Serious: Yes (Hospitalization)
  Sender: FDA-Public Use
  Company Number: CA-MERCK-0411CAN00079

PATIENT
  Age: 31 Year
  Sex: Female

DRUGS (2)
  1. ALDOMET [Suspect]
     Indication: BLOOD PRESSURE
     Route: 048
     Dates: start: 20030101, end: 20030101
  2. FOLIC ACID [Concomitant]
     Route: 065
     Dates: start: 20020101

REACTIONS (3)
  - BLOOD PRESSURE INCREASED [None]
  - DRUG EXPOSURE DURING PREGNANCY [None]
  - INDUCED LABOUR [None]
